FAERS Safety Report 16054232 (Version 1)
Quarter: 2019Q1

REPORT INFORMATION
  Report Type: Spontaneous
  Country: DE (occurrence: DE)
  Receive Date: 20190308
  Receipt Date: 20190308
  Transmission Date: 20190418
  Serious: Yes (Hospitalization)
  Sender: FDA-Public Use
  Company Number: PHHY2019DE048879

PATIENT
  Age: 79 Year
  Sex: Female

DRUGS (2)
  1. CLARITHROMYCIN. [Suspect]
     Active Substance: CLARITHROMYCIN
     Indication: PNEUMONIA
     Dosage: 500 MG, QD
     Route: 048
     Dates: start: 20190209, end: 20190211
  2. MERONEM [Concomitant]
     Active Substance: MEROPENEM
     Indication: ANTIBIOTIC THERAPY
     Route: 065

REACTIONS (3)
  - Gamma-glutamyltransferase [Recovered/Resolved]
  - Alanine aminotransferase [Recovered/Resolved]
  - Aspartate aminotransferase [Recovered/Resolved]

NARRATIVE: CASE EVENT DATE: 20190210
